FAERS Safety Report 4940937-8 (Version None)
Quarter: 2006Q1

REPORT INFORMATION
  Report Type: 
  Country: None (occurrence: None)
  Receive Date: 20060313
  Receipt Date: 20060116
  Transmission Date: 20060701
  Serious: Yes (Hospitalization, Other)
  Sender: FDA-Public Use
  Company Number: PHRM2006FR00559

PATIENT
  Age: 73 Year
  Sex: Female
  Weight: 85 kg

DRUGS (6)
  1. ZOMETA [Suspect]
     Indication: METASTASES TO BONE
     Dosage: 4 MG EVERY 6 WEEKS
     Route: 042
     Dates: start: 20020401, end: 20050801
  2. AREDIA [Suspect]
     Indication: METASTASES TO BONE
     Dosage: 90 MG EVERY THREE WEEKS
     Route: 042
     Dates: start: 20000117, end: 20020321
  3. CLASTOBAN [Concomitant]
     Indication: BREAST CANCER
     Dosage: 400 MG, QID
     Dates: start: 19990101, end: 20000101
  4. NOLVADEX [Concomitant]
     Indication: BREAST CANCER
     Dosage: 20 MG DAILY
     Route: 048
     Dates: start: 19990101, end: 20020301
  5. FEMARA [Concomitant]
     Indication: BREAST CANCER
     Dosage: 2.5 MG, QD
     Route: 048
     Dates: start: 20020301
  6. ARIMIDEX [Concomitant]
     Indication: BREAST CANCER
     Dosage: 1 DF DAILY
     Dates: start: 20020101

REACTIONS (21)
  - ANXIETY [None]
  - BONE DEBRIDEMENT [None]
  - BONE EROSION [None]
  - C-REACTIVE PROTEIN INCREASED [None]
  - CANDIDIASIS [None]
  - ESCHERICHIA INFECTION [None]
  - FACE OEDEMA [None]
  - JOINT EFFUSION [None]
  - MUSCLE ABSCESS [None]
  - OSTEITIS [None]
  - OSTEOARTHRITIS [None]
  - OSTEOLYSIS [None]
  - OSTEONECROSIS [None]
  - PARAESTHESIA [None]
  - PERIARTHRITIS [None]
  - POSTOPERATIVE INFECTION [None]
  - PURULENT DISCHARGE [None]
  - PYREXIA [None]
  - ROTATOR CUFF SYNDROME [None]
  - SURGERY [None]
  - TOOTH EXTRACTION [None]
